FAERS Safety Report 4714136-9 (Version None)
Quarter: 2005Q3

REPORT INFORMATION
  Report Type: 
  Country: None (occurrence: None)
  Receive Date: 20050714
  Receipt Date: 20050714
  Transmission Date: 20060218
  Serious: No
  Sender: FDA-Public Use
  Company Number: None

PATIENT
  Age: 49 Year
  Sex: Female

DRUGS (17)
  1. CYTOXAN [Suspect]
     Dosage: 1122 MG
     Dates: start: 20041223, end: 20050203
  2. ADRIAMYCIN PFS [Concomitant]
  3. FLUCONAZOLE [Concomitant]
  4. MAALOX [Concomitant]
  5. BENADRYL [Concomitant]
  6. COMPAZINE [Concomitant]
  7. ATIVAN [Concomitant]
  8. COLACE [Concomitant]
  9. SENNEKOT [Concomitant]
  10. NYSTATN [Concomitant]
  11. LACTOBACILLUS [Concomitant]
  12. VERSED [Concomitant]
  13. FENTANYL [Concomitant]
  14. ZOFRAN [Concomitant]
  15. DEXAMETHASONE [Concomitant]
  16. APREPITANT [Concomitant]
  17. EMEND [Concomitant]

REACTIONS (3)
  - ALANINE AMINOTRANSFERASE INCREASED [None]
  - ASPARTATE AMINOTRANSFERASE INCREASED [None]
  - HEPATIC TRAUMA [None]
